FAERS Safety Report 7105729-2 (Version None)
Quarter: 2010Q4

REPORT INFORMATION
  Report Type: 
  Country: None (occurrence: None)
  Receive Date: 20101116
  Receipt Date: 20101105
  Transmission Date: 20110411
  Serious: Yes (Hospitalization)
  Sender: FDA-Public Use
  Company Number: PHHY2010JP67535

PATIENT

DRUGS (3)
  1. NEORAL [Suspect]
     Indication: PEMPHIGOID
     Dosage: 180 MG IN TWO DIVIDED DOSES DAILY
     Route: 048
  2. NEORAL [Suspect]
     Dosage: 360 MG DAILY
     Route: 048
  3. ADRENAL HORMONE PREPARATIONS [Suspect]

REACTIONS (4)
  - ACCIDENTAL OVERDOSE [None]
  - DRUG PRESCRIBING ERROR [None]
  - GASTROINTESTINAL PERFORATION [None]
  - IMMUNOSUPPRESSANT DRUG LEVEL INCREASED [None]
